FAERS Safety Report 7491263-7 (Version None)
Quarter: 2011Q2

REPORT INFORMATION
  Report Type: 
  Country: None (occurrence: None)
  Receive Date: 20110519
  Receipt Date: 20110513
  Transmission Date: 20111010
  Serious: Yes (Other)
  Sender: FDA-Public Use
  Company Number: A0927303A

PATIENT
  Age: 62 Year
  Sex: Female

DRUGS (3)
  1. DIAZEPAM [Concomitant]
  2. SPIRIVA [Concomitant]
  3. ADVAIR DISKUS 100/50 [Suspect]
     Dosage: 1PUFF TWICE PER DAY
     Route: 055
     Dates: start: 20100801, end: 20110512

REACTIONS (12)
  - DYSPHAGIA [None]
  - OXYGEN SATURATION DECREASED [None]
  - EYE PAIN [None]
  - PAIN IN JAW [None]
  - CATARACT [None]
  - HYPOAESTHESIA [None]
  - PARAESTHESIA [None]
  - CONDITION AGGRAVATED [None]
  - MUSCLE SPASMS [None]
  - INSOMNIA [None]
  - DYSPNOEA [None]
  - CONSTIPATION [None]
